FAERS Safety Report 5289036-9 (Version None)
Quarter: 2007Q2

REPORT INFORMATION
  Report Type: 
  Country: None (occurrence: None)
  Receive Date: 20070405
  Receipt Date: 20070326
  Transmission Date: 20071010
  Serious: Yes (Other)
  Sender: FDA-Public Use
  Company Number: US-PFIZER INC-2007025265

PATIENT
  Sex: Female

DRUGS (6)
  1. CHANTIX [Suspect]
     Indication: EX-SMOKER
     Route: 048
  2. ZOCOR [Concomitant]
  3. EFFEXOR XR [Concomitant]
  4. XANAX [Concomitant]
  5. LOPRESSOR [Concomitant]
  6. LAMICTAL [Concomitant]

REACTIONS (3)
  - ANXIETY [None]
  - DEPRESSION [None]
  - PANIC REACTION [None]
